FAERS Safety Report 8554887-1 (Version None)
Quarter: 2012Q3

REPORT INFORMATION
  Report Type: 
  Country: None (occurrence: None)
  Receive Date: 20120726
  Receipt Date: 20120726
  Transmission Date: 20120928
  Serious: Yes (Life-Threatening)
  Sender: FDA-Public Use
  Company Number: None

PATIENT
  Age: 69 Year
  Sex: Female
  Weight: 45.3597 kg

DRUGS (2)
  1. RITUXIMAB 375 MG/ M2 [Suspect]
     Indication: B-CELL LYMPHOMA
     Dosage: EVERY 4 WEEKS X 6
  2. BENDAMUSTINE HYDROCHLORIDE [Concomitant]

REACTIONS (3)
  - APHASIA [None]
  - PROGRESSIVE MULTIFOCAL LEUKOENCEPHALOPATHY [None]
  - LYMPHOCYTE COUNT DECREASED [None]
